FAERS Safety Report 8544157 (Version 4)
Quarter: 2013Q4

REPORT INFORMATION
  Report Type: Spontaneous
  Country: TR (occurrence: TR)
  Receive Date: 20120503
  Receipt Date: 20131113
  Transmission Date: 20140711
  Serious: Yes (Life-Threatening, Hospitalization, Other)
  Sender: FDA-Public Use
  Company Number: TR-AMGEN-TURSP2012026326

PATIENT
  Age: 63 Year
  Sex: Female
  Weight: 106 kg

DRUGS (1)
  1. ENBREL [Suspect]
     Indication: ANKYLOSING SPONDYLITIS
     Dosage: 50 MG, WEEKLY
     Route: 058
     Dates: start: 20110504

REACTIONS (10)
  - Loss of consciousness [Recovered/Resolved]
  - Oedema [Recovered/Resolved]
  - Bone pain [Recovered/Resolved]
  - Gait disturbance [Not Recovered/Not Resolved]
  - Mobility decreased [Not Recovered/Not Resolved]
  - Bone pain [Not Recovered/Not Resolved]
  - Weight loss poor [Unknown]
  - Disease progression [Recovered/Resolved]
  - Influenza [Recovered/Resolved]
  - Lung infection [Recovered/Resolved]
